FAERS Safety Report 9228311 (Version 2)
Quarter: 2013Q2

REPORT INFORMATION
  Report Type: Spontaneous
  Country: US (occurrence: US)
  Receive Date: 20130412
  Receipt Date: 20130508
  Transmission Date: 20140414
  Serious: No
  Sender: FDA-Public Use
  Company Number: US-ASTRAZENECA-2013SE18123

PATIENT
  Age: 672 Month
  Sex: Male
  Weight: 93 kg

DRUGS (5)
  1. BRILINTA [Suspect]
     Indication: BLOOD PRESSURE
     Route: 048
     Dates: start: 201302, end: 201302
  2. BYSTOLIC [Concomitant]
  3. BABY ASPIRIN [Concomitant]
  4. COUMADIN [Concomitant]
  5. PRAVASTATIN [Concomitant]
     Indication: HYPERCHOLESTEROLAEMIA

REACTIONS (2)
  - Rash pruritic [Recovered/Resolved]
  - Off label use [Unknown]
